FAERS Safety Report 21809678 (Version 3)
Quarter: 2023Q1

REPORT INFORMATION
  Report Type: Spontaneous
  Country: JP (occurrence: JP)
  Receive Date: 20230103
  Receipt Date: 20230126
  Transmission Date: 20230417
  Serious: Yes (Hospitalization, Other)
  Sender: FDA-Public Use
  Company Number: JP-BAXTER-2022BAX031869

PATIENT
  Age: 49 Year
  Sex: Female

DRUGS (11)
  1. CYCLOPHOSPHAMIDE [Suspect]
     Active Substance: CYCLOPHOSPHAMIDE
     Indication: Product used for unknown indication
     Dosage: 40 MG/KG/DAY, ADMINISTERED ONLY THIS DAY
     Route: 065
     Dates: start: 20220502, end: 20220502
  2. TACROLIMUS [Concomitant]
     Active Substance: TACROLIMUS
     Indication: Immunosuppression
     Dosage: 2 MG/DAY
     Route: 048
     Dates: start: 20221207
  3. WARFARIN [Concomitant]
     Active Substance: WARFARIN
     Indication: Thrombosis prophylaxis
     Dosage: 1.5 MG/DAY
     Route: 048
     Dates: start: 20220810
  4. DIETARY SUPPLEMENT\PROBIOTICS [Concomitant]
     Active Substance: DIETARY SUPPLEMENT\PROBIOTICS
     Indication: Dysbiosis
     Dosage: 3 DOSAGE FORM/DAY
     Route: 048
     Dates: start: 20220506
  5. SULFAMETHOXAZOLE\TRIMETHOPRIM [Concomitant]
     Active Substance: SULFAMETHOXAZOLE\TRIMETHOPRIM
     Indication: Infection prophylaxis
     Dosage: 1 DOSAGE FORM/DAY
     Route: 048
     Dates: start: 20220629
  6. URSODIOL [Concomitant]
     Active Substance: URSODIOL
     Indication: Hepatic function abnormal
     Dosage: 600 MG/DAY
     Route: 048
     Dates: start: 20220429
  7. RABEPRAZOLE SODIUM [Concomitant]
     Active Substance: RABEPRAZOLE SODIUM
     Indication: Prophylaxis against gastrointestinal ulcer
     Dosage: 10 MG/DAY
     Route: 048
     Dates: start: 20220509
  8. FLOPROPIONE [Concomitant]
     Active Substance: FLOPROPIONE
     Indication: Hypercholia
     Dosage: 240 MG/DAY
     Route: 048
     Dates: start: 20220617
  9. ASPIRIN [Concomitant]
     Active Substance: ASPIRIN
     Indication: Thrombosis prophylaxis
     Dosage: 100 MG/DAY
     Route: 048
     Dates: start: 20220501
  10. MAGNESIUM OXIDE [Concomitant]
     Active Substance: MAGNESIUM OXIDE
     Indication: Hypermagnesaemia
     Dosage: 750 MG/DAY
     Route: 048
     Dates: start: 20220622
  11. MAGNESIUM OXIDE [Concomitant]
     Active Substance: MAGNESIUM OXIDE
     Indication: Constipation prophylaxis

REACTIONS (3)
  - Incarcerated hernia [Recovered/Resolved]
  - Diaphragmatic hernia [Recovered/Resolved]
  - Abdominal pain [Recovering/Resolving]

NARRATIVE: CASE EVENT DATE: 20221228
